FAERS Safety Report 8986612 (Version 1)
Quarter: 2012Q4

REPORT INFORMATION
  Report Type: 
  Country: VN (occurrence: VN)
  Receive Date: 20121227
  Receipt Date: 20121227
  Transmission Date: 20130627
  Serious: Yes (Death, Hospitalization)
  Sender: FDA-Public Use
  Company Number: PHHY2012VN119946

PATIENT
  Age: 52 Year
  Sex: Female

DRUGS (1)
  1. SANDIMMUN NEORAL [Suspect]
     Indication: LIVER TRANSPLANT
     Dosage: 75 mg, BID
     Route: 048
     Dates: start: 201210, end: 20121221

REACTIONS (1)
  - Gastrointestinal haemorrhage [Fatal]
